FAERS Safety Report 18382600 (Version 2)
Quarter: 2020Q4

REPORT INFORMATION
  Report Type: Spontaneous
  Country: JP (occurrence: JP)
  Receive Date: 20201014
  Receipt Date: 20201026
  Transmission Date: 20210114
  Serious: Yes (Hospitalization)
  Sender: FDA-Public Use
  Company Number: JP-TEVA-2020-JP-1837379

PATIENT
  Age: 79 Year
  Sex: Male

DRUGS (4)
  1. MIZORIBINE [Suspect]
     Active Substance: MIZORIBINE
     Indication: LUPUS NEPHRITIS
  2. PREDNISOLONE. [Suspect]
     Active Substance: PREDNISOLONE
     Indication: SYSTEMIC LUPUS ERYTHEMATOSUS
     Dosage: 3MG
     Route: 048
  3. MIZORIBINE [Suspect]
     Active Substance: MIZORIBINE
     Indication: SYSTEMIC LUPUS ERYTHEMATOSUS
     Dosage: 150MG
     Route: 048
  4. PREDNISOLONE. [Suspect]
     Active Substance: PREDNISOLONE
     Indication: LUPUS NEPHRITIS

REACTIONS (6)
  - Herpes zoster meningomyelitis [Recovering/Resolving]
  - Dysuria [Recovered/Resolved]
  - Gait inability [Recovering/Resolving]
  - Dyschezia [Recovered/Resolved]
  - Paraplegia [Recovering/Resolving]
  - Bladder dilatation [Recovered/Resolved]
